FAERS Safety Report 11969777 (Version 2)
Quarter: 2016Q1

REPORT INFORMATION
  Report Type: Spontaneous
  Country: BR (occurrence: BR)
  Receive Date: 20160128
  Receipt Date: 20160303
  Transmission Date: 20160526
  Serious: Yes (Other)
  Sender: FDA-Public Use
  Company Number: BR-PFIZER INC-2015464822

PATIENT
  Age: 32 Year
  Sex: Female

DRUGS (1)
  1. XALATAN [Suspect]
     Active Substance: LATANOPROST
     Indication: GLAUCOMA
     Dosage: 1 DROP IN EACH EYE) 1X/DAY
     Route: 047
     Dates: start: 201501

REACTIONS (5)
  - Eye pain [Recovered/Resolved]
  - Eye irritation [Recovered/Resolved]
  - Poor quality drug administered [Unknown]
  - Intraocular pressure increased [Recovered/Resolved]
  - Incorrect product storage [Unknown]

NARRATIVE: CASE EVENT DATE: 2015
